FAERS Safety Report 24118135 (Version 2)
Quarter: 2024Q3

REPORT INFORMATION
  Report Type: Spontaneous
  Country: US (occurrence: US)
  Receive Date: 20240722
  Receipt Date: 20240906
  Transmission Date: 20241016
  Serious: Yes (Death, Hospitalization)
  Sender: TEVA
  Company Number: US-TEVA-VS-3219674

PATIENT
  Age: 61 Year
  Sex: Female

DRUGS (4)
  1. METFORMIN [Suspect]
     Active Substance: METFORMIN HYDROCHLORIDE
     Indication: Diabetes mellitus
     Route: 065
  2. TYLENOL [Suspect]
     Active Substance: ACETAMINOPHEN
     Indication: Sciatica
     Route: 065
     Dates: start: 20221021
  3. IBUPROFEN [Concomitant]
     Active Substance: IBUPROFEN
     Indication: Sciatica
     Route: 065
     Dates: start: 20221021
  4. KETAMINE [Suspect]
     Active Substance: KETAMINE
     Indication: Sciatica
     Route: 065
     Dates: start: 20221021

REACTIONS (10)
  - Metabolic acidosis [Fatal]
  - Brain injury [Fatal]
  - Toxicity to various agents [Fatal]
  - Cardiac arrest [Fatal]
  - Renal failure [Fatal]
  - Vomiting [Unknown]
  - Brain death [Fatal]
  - Nausea [Unknown]
  - Cardiogenic shock [Fatal]
  - Lactic acidosis [Fatal]

NARRATIVE: CASE EVENT DATE: 20221001
